FAERS Safety Report 9746228 (Version 2)
Quarter: 2013Q4

REPORT INFORMATION
  Report Type: Report from Study
  Country: FR (occurrence: FR)
  Receive Date: 20131211
  Receipt Date: 20131211
  Transmission Date: 20140711
  Serious: Yes (Hospitalization)
  Sender: FDA-Public Use
  Company Number: FR-PFIZER INC-2013330587

PATIENT
  Age: 67 Year
  Sex: Male
  Weight: 99.9 kg

DRUGS (10)
  1. PLACEBO [Suspect]
     Indication: HEPATOCELLULAR CARCINOMA
     Dosage: 37.5 MG, 1X/DAY
     Route: 048
     Dates: start: 20131106
  2. PLACEBO [Suspect]
     Dosage: UNK
     Route: 048
     Dates: start: 20131117
  3. DOXORUBICIN HCL [Suspect]
     Indication: HEPATOCELLULAR CARCINOMA
     Dosage: 150 MG, CYCLIC
     Route: 013
     Dates: start: 20131114, end: 20131114
  4. RAMIPRIL [Concomitant]
     Indication: HYPERTENSION
     Dosage: 5 MG, DAILY
  5. HYPERIUM [Concomitant]
     Dosage: 1 MG, 1X/DAY
  6. SPIRONOLACTONE [Concomitant]
     Indication: PROPHYLAXIS
     Dosage: 25 MG, DAILY
  7. OMEPRAZOLE [Concomitant]
     Indication: GASTROOESOPHAGEAL REFLUX DISEASE
     Dosage: 20 MG, DAILY
  8. JANUMET [Concomitant]
  9. DIAMICRON [Concomitant]
     Dosage: 60 MG, UNK
  10. IOMERON [Concomitant]
     Dosage: 200 MG/ML, UNK

REACTIONS (1)
  - Hyperglycaemia [Recovering/Resolving]
